FAERS Safety Report 23688202 (Version 1)
Quarter: 2024Q1

REPORT INFORMATION
  Report Type: Spontaneous
  Country: CN (occurrence: CN)
  Receive Date: 20240329
  Receipt Date: 20240329
  Transmission Date: 20240410
  Serious: Yes (Other)
  Sender: FDA-Public Use
  Company Number: CN-STRIDES ARCOLAB LIMITED-2024SP003578

PATIENT
  Age: 76 Year
  Sex: Male

DRUGS (95)
  1. PROPAFENONE [Suspect]
     Active Substance: PROPAFENONE
     Indication: Atrial fibrillation
     Dosage: 300 MILLIGRAM/DAY
     Route: 065
  2. PROPAFENONE [Suspect]
     Active Substance: PROPAFENONE
     Dosage: 300 MILLIGRAM, (DAY 1)
     Route: 065
     Dates: start: 20220727
  3. PROPAFENONE [Suspect]
     Active Substance: PROPAFENONE
     Dosage: UNK, (DAY 2)
     Route: 065
     Dates: start: 20220728
  4. PROPAFENONE [Suspect]
     Active Substance: PROPAFENONE
     Dosage: UNK, (DAY 3)
     Route: 065
     Dates: start: 20220729
  5. PROPAFENONE [Suspect]
     Active Substance: PROPAFENONE
     Dosage: UNK, (DAY 4)
     Route: 065
     Dates: start: 20220730
  6. PROPAFENONE [Suspect]
     Active Substance: PROPAFENONE
     Dosage: 100 MILLIGRAM, (DAY 5)
     Route: 065
     Dates: start: 20220731
  7. PROPAFENONE [Suspect]
     Active Substance: PROPAFENONE
     Dosage: 150 MILLIGRAM, (DAY 6)
     Route: 065
     Dates: start: 20220801
  8. PROPAFENONE [Suspect]
     Active Substance: PROPAFENONE
     Dosage: 150 MILLIGRAM, (DAY 7)
     Route: 065
     Dates: start: 20220802
  9. PROPAFENONE [Suspect]
     Active Substance: PROPAFENONE
     Dosage: 150 MILLIGRAM, (DAY 8)
     Route: 065
     Dates: start: 20220803
  10. PROPAFENONE [Suspect]
     Active Substance: PROPAFENONE
     Dosage: 225 MILLIGRAM, (DAY 9)
     Route: 065
     Dates: start: 20220804
  11. PROPAFENONE [Suspect]
     Active Substance: PROPAFENONE
     Dosage: 225 MILLIGRAM, (DAY 10)
     Route: 065
     Dates: start: 20220805
  12. PROPAFENONE [Suspect]
     Active Substance: PROPAFENONE
     Dosage: 225 MILLIGRAM, (DAY 11)
     Route: 065
     Dates: start: 20220806
  13. PROPAFENONE [Suspect]
     Active Substance: PROPAFENONE
     Dosage: 225 MILLIGRAM, (DAY 12)
     Route: 065
     Dates: start: 20220807
  14. PROPAFENONE [Suspect]
     Active Substance: PROPAFENONE
     Dosage: 225 MILLIGRAM, (DAY 13)
     Route: 065
     Dates: start: 20220808
  15. PROPAFENONE [Suspect]
     Active Substance: PROPAFENONE
     Dosage: 300 MILLIGRAM, (DAY 14)
     Route: 065
     Dates: start: 20220809
  16. PROPAFENONE [Suspect]
     Active Substance: PROPAFENONE
     Dosage: 300 MILLIGRAM, (DAY 15)
     Route: 065
     Dates: start: 20220810
  17. PROPAFENONE [Suspect]
     Active Substance: PROPAFENONE
     Dosage: 300 MILLIGRAM, (DAY 16)
     Route: 065
     Dates: start: 20220811
  18. PROPAFENONE [Suspect]
     Active Substance: PROPAFENONE
     Dosage: 300 MILLIGRAM, (DAY 17)
     Route: 065
     Dates: start: 20220812
  19. PROPAFENONE [Suspect]
     Active Substance: PROPAFENONE
     Dosage: 400 MILLIGRAM, (DAY 18)
     Route: 065
     Dates: start: 20220813
  20. PROPAFENONE [Suspect]
     Active Substance: PROPAFENONE
     Dosage: 600 MILLIGRAM, (DAY 19)
     Route: 065
     Dates: start: 20220814
  21. PROPAFENONE [Suspect]
     Active Substance: PROPAFENONE
     Dosage: 600 MILLIGRAM, (DAY 20)
     Route: 065
     Dates: start: 20220815
  22. PROPAFENONE [Suspect]
     Active Substance: PROPAFENONE
     Dosage: 600 MILLIGRAM, (DAY 21)
     Route: 065
     Dates: start: 20220816
  23. PROPAFENONE [Suspect]
     Active Substance: PROPAFENONE
     Dosage: 600 MILLIGRAM, (DAY 22)
     Route: 065
     Dates: start: 20220817
  24. RIVAROXABAN [Suspect]
     Active Substance: RIVAROXABAN
     Indication: Atrial fibrillation
     Dosage: 15 MILLIGRAM/DAY
     Route: 048
  25. AMIODARONE [Suspect]
     Active Substance: AMIODARONE
     Indication: Atrial fibrillation
     Dosage: 0.6 GRAM/DAY
     Route: 065
  26. AMIODARONE [Suspect]
     Active Substance: AMIODARONE
     Dosage: UNK, (DAY 1)
     Route: 065
     Dates: start: 20220727
  27. AMIODARONE [Suspect]
     Active Substance: AMIODARONE
     Dosage: 0.75 MILLIGRAM (DAY 2)
     Route: 065
     Dates: start: 20220728
  28. AMIODARONE [Suspect]
     Active Substance: AMIODARONE
     Dosage: 0.6 MILLIGRAM, (DAY 3)
     Route: 065
     Dates: start: 20220729
  29. AMIODARONE [Suspect]
     Active Substance: AMIODARONE
     Dosage: UNK, (DAY 4)
     Route: 065
     Dates: start: 20220730
  30. AMIODARONE [Suspect]
     Active Substance: AMIODARONE
     Dosage: UNK, (DAY 5)
     Route: 065
     Dates: start: 20220731
  31. AMIODARONE [Suspect]
     Active Substance: AMIODARONE
     Dosage: UNK, (DAY 6)
     Route: 065
     Dates: start: 20220801
  32. AMIODARONE [Suspect]
     Active Substance: AMIODARONE
     Dosage: UNK, (DAY 7)
     Route: 065
     Dates: start: 20220802
  33. AMIODARONE [Suspect]
     Active Substance: AMIODARONE
     Dosage: UNK, (DAY 8)
     Route: 065
     Dates: start: 20220803
  34. AMIODARONE [Suspect]
     Active Substance: AMIODARONE
     Dosage: UNK, (DAY 9)
     Route: 065
     Dates: start: 20220804
  35. AMIODARONE [Suspect]
     Active Substance: AMIODARONE
     Dosage: UNK, (DAY 10)
     Route: 065
     Dates: start: 20220805
  36. AMIODARONE [Suspect]
     Active Substance: AMIODARONE
     Dosage: UNK, (DAY 11)
     Route: 065
     Dates: start: 20220806
  37. AMIODARONE [Suspect]
     Active Substance: AMIODARONE
     Dosage: UNK, (DAY 12)
     Route: 065
     Dates: start: 20220807
  38. AMIODARONE [Suspect]
     Active Substance: AMIODARONE
     Dosage: UNK, (DAY 13)
     Route: 065
     Dates: start: 20220808
  39. AMIODARONE [Suspect]
     Active Substance: AMIODARONE
     Dosage: UNK, (DAY 14)
     Route: 065
     Dates: start: 20220809
  40. AMIODARONE [Suspect]
     Active Substance: AMIODARONE
     Dosage: UNK, (DAY 15)
     Route: 065
     Dates: start: 20220810
  41. AMIODARONE [Suspect]
     Active Substance: AMIODARONE
     Dosage: UNK, (DAY 16)
     Route: 065
     Dates: start: 20220811
  42. AMIODARONE [Suspect]
     Active Substance: AMIODARONE
     Dosage: UNK, (DAY 17)
     Route: 065
     Dates: start: 20220812
  43. AMIODARONE [Suspect]
     Active Substance: AMIODARONE
     Dosage: UNK, (DAY 18)
     Route: 065
     Dates: start: 20220813
  44. AMIODARONE [Suspect]
     Active Substance: AMIODARONE
     Dosage: UNK, (DAY 19)
     Route: 065
     Dates: start: 20220814
  45. AMIODARONE [Suspect]
     Active Substance: AMIODARONE
     Dosage: UNK, (DAY 20)
     Route: 065
     Dates: start: 20220815
  46. AMIODARONE [Suspect]
     Active Substance: AMIODARONE
     Dosage: UNK, (DAY 21)
     Route: 065
     Dates: start: 20220816
  47. AMIODARONE [Suspect]
     Active Substance: AMIODARONE
     Dosage: UNK, (DAY 22)
     Route: 065
     Dates: start: 20220817
  48. DILTIAZEM [Concomitant]
     Active Substance: DILTIAZEM
     Indication: Arrhythmia
     Dosage: 45 MILLIGRAM/DAY
     Route: 065
  49. DILTIAZEM [Concomitant]
     Active Substance: DILTIAZEM
     Dosage: UNK, (DAY 1)
     Route: 065
     Dates: start: 20220727
  50. DILTIAZEM [Concomitant]
     Active Substance: DILTIAZEM
     Dosage: UNK, (DAY 2)
     Route: 065
     Dates: start: 20220728
  51. DILTIAZEM [Concomitant]
     Active Substance: DILTIAZEM
     Dosage: UNK, (DAY 3)
     Route: 065
     Dates: start: 20220729
  52. DILTIAZEM [Concomitant]
     Active Substance: DILTIAZEM
     Dosage: 60 MILLIGRAM, (DAY 4)
     Route: 065
     Dates: start: 20220730
  53. DILTIAZEM [Concomitant]
     Active Substance: DILTIAZEM
     Dosage: 50 MILLIGRAM, (DAY 5)
     Route: 065
     Dates: start: 20220731
  54. DILTIAZEM [Concomitant]
     Active Substance: DILTIAZEM
     Dosage: UNK, (DAY 6)
     Route: 065
     Dates: start: 20220801
  55. DILTIAZEM [Concomitant]
     Active Substance: DILTIAZEM
     Dosage: UNK, (DAY 7)
     Route: 065
     Dates: start: 20220802
  56. DILTIAZEM [Concomitant]
     Active Substance: DILTIAZEM
     Dosage: UNK, (DAY 8)
     Route: 065
     Dates: start: 20220803
  57. DILTIAZEM [Concomitant]
     Active Substance: DILTIAZEM
     Dosage: UNK, (DAY 9)
     Route: 065
     Dates: start: 20220804
  58. DILTIAZEM [Concomitant]
     Active Substance: DILTIAZEM
     Dosage: UNK, (DAY 10)
     Route: 065
     Dates: start: 20220805
  59. DILTIAZEM [Concomitant]
     Active Substance: DILTIAZEM
     Dosage: UNK,(DAY 11)
     Route: 065
     Dates: start: 20220806
  60. DILTIAZEM [Concomitant]
     Active Substance: DILTIAZEM
     Dosage: UNK, (DAY 12)
     Route: 065
     Dates: start: 20220807
  61. DILTIAZEM [Concomitant]
     Active Substance: DILTIAZEM
     Dosage: UNK, (DAY 13)
     Route: 065
     Dates: start: 20220808
  62. DILTIAZEM [Concomitant]
     Active Substance: DILTIAZEM
     Dosage: UNK, (DAY 14)
     Route: 065
     Dates: start: 20220809
  63. DILTIAZEM [Concomitant]
     Active Substance: DILTIAZEM
     Dosage: UNK, (DAY 15)
     Route: 065
     Dates: start: 20220810
  64. DILTIAZEM [Concomitant]
     Active Substance: DILTIAZEM
     Dosage: UNK, (DAY 16)
     Route: 065
     Dates: start: 20220811
  65. DILTIAZEM [Concomitant]
     Active Substance: DILTIAZEM
     Dosage: UNK, (DAY 17)
     Route: 065
     Dates: start: 20220812
  66. DILTIAZEM [Concomitant]
     Active Substance: DILTIAZEM
     Dosage: UNK, (DAY 18)
     Route: 065
     Dates: start: 20220813
  67. DILTIAZEM [Concomitant]
     Active Substance: DILTIAZEM
     Dosage: UNK, (DAY 19)
     Route: 065
     Dates: start: 20220814
  68. DILTIAZEM [Concomitant]
     Active Substance: DILTIAZEM
     Dosage: UNK, (DAY 20)
     Route: 065
     Dates: start: 20220815
  69. DILTIAZEM [Concomitant]
     Active Substance: DILTIAZEM
     Dosage: UNK, (DAY 21)
     Route: 065
     Dates: start: 20220816
  70. DILTIAZEM [Concomitant]
     Active Substance: DILTIAZEM
     Dosage: UNK, (DAY 22)
     Route: 065
     Dates: start: 20220817
  71. METOPROLOL [Concomitant]
     Active Substance: METOPROLOL
     Indication: Chest discomfort
     Dosage: UNK, WITHIN 30 MINUTES OF ONSET FOR APPROXIMATELY 10 YEARS
     Route: 048
  72. METOPROLOL [Concomitant]
     Active Substance: METOPROLOL
     Indication: Palpitations
     Dosage: 25 MILLIGRAM/DAY
     Route: 065
  73. METOPROLOL [Concomitant]
     Active Substance: METOPROLOL
     Indication: Arrhythmia
     Dosage: UNK, (DAY 1)
     Route: 065
     Dates: start: 20220727
  74. METOPROLOL [Concomitant]
     Active Substance: METOPROLOL
     Dosage: 12.5 MILLIGRAM, (DAY 2)
     Route: 065
     Dates: start: 20220728
  75. METOPROLOL [Concomitant]
     Active Substance: METOPROLOL
     Dosage: 12.5 MILLIGRAM, (DAY 3)
     Route: 065
     Dates: start: 20220729
  76. METOPROLOL [Concomitant]
     Active Substance: METOPROLOL
     Dosage: 12.5 MILLIGRAM, (DAY 4)
     Route: 065
     Dates: start: 20220730
  77. METOPROLOL [Concomitant]
     Active Substance: METOPROLOL
     Dosage: UNK, (DAY 5)
     Route: 065
     Dates: start: 20220731
  78. METOPROLOL [Concomitant]
     Active Substance: METOPROLOL
     Dosage: UNK, (DAY 6)
     Route: 065
     Dates: start: 20220801
  79. METOPROLOL [Concomitant]
     Active Substance: METOPROLOL
     Dosage: UNK, (DAY 07)
     Route: 065
     Dates: start: 20220802
  80. METOPROLOL [Concomitant]
     Active Substance: METOPROLOL
     Dosage: UNK, (DAY 08)
     Route: 065
     Dates: start: 20220803
  81. METOPROLOL [Concomitant]
     Active Substance: METOPROLOL
     Dosage: UNK, (DAY 09)
     Route: 065
     Dates: start: 20220804
  82. METOPROLOL [Concomitant]
     Active Substance: METOPROLOL
     Dosage: UNK, (DAY 10)
     Route: 065
     Dates: start: 20220805
  83. METOPROLOL [Concomitant]
     Active Substance: METOPROLOL
     Dosage: UNK, (DAY 11)
     Route: 065
     Dates: start: 20220806
  84. METOPROLOL [Concomitant]
     Active Substance: METOPROLOL
     Dosage: UNK, (DAY 12)
     Route: 065
     Dates: start: 20220807
  85. METOPROLOL [Concomitant]
     Active Substance: METOPROLOL
     Dosage: UNK, (DAY 13)
     Route: 065
     Dates: start: 20220808
  86. METOPROLOL [Concomitant]
     Active Substance: METOPROLOL
     Dosage: UNK, (DAY 14)
     Route: 065
     Dates: start: 20220809
  87. METOPROLOL [Concomitant]
     Active Substance: METOPROLOL
     Dosage: UNK, (DAY 15)
     Route: 065
     Dates: start: 20220810
  88. METOPROLOL [Concomitant]
     Active Substance: METOPROLOL
     Dosage: UNK, (DAY 16)
     Route: 065
     Dates: start: 20220811
  89. METOPROLOL [Concomitant]
     Active Substance: METOPROLOL
     Dosage: UNK, (DAY 17)
     Route: 065
     Dates: start: 20220812
  90. METOPROLOL [Concomitant]
     Active Substance: METOPROLOL
     Dosage: UNK, (DAY 18)
     Route: 065
     Dates: start: 20220813
  91. METOPROLOL [Concomitant]
     Active Substance: METOPROLOL
     Dosage: UNK, (DAY 19)
     Route: 065
     Dates: start: 20220814
  92. METOPROLOL [Concomitant]
     Active Substance: METOPROLOL
     Dosage: UNK, (DAY 20)
     Route: 065
     Dates: start: 20220815
  93. METOPROLOL [Concomitant]
     Active Substance: METOPROLOL
     Dosage: UNK, (DAY 21)
     Route: 065
     Dates: start: 20220816
  94. METOPROLOL [Concomitant]
     Active Substance: METOPROLOL
     Dosage: UNK, (DAY 22)
     Route: 065
     Dates: start: 20220817
  95. Cedilanid [Concomitant]
     Indication: Product used for unknown indication
     Dosage: UNK
     Route: 048

REACTIONS (2)
  - Sinus arrest [Recovered/Resolved]
  - Loss of consciousness [Recovered/Resolved]
